FAERS Safety Report 7466542-X (Version None)
Quarter: 2011Q2

REPORT INFORMATION
  Report Type: 
  Country: None (occurrence: None)
  Receive Date: 20110509
  Receipt Date: 20110502
  Transmission Date: 20111010
  Serious: Yes (Hospitalization)
  Sender: FDA-Public Use
  Company Number: FR-SANOFI-AVENTIS-2011SA027664

PATIENT
  Age: 86 Year
  Sex: Male

DRUGS (4)
  1. DIGOXIN [Concomitant]
     Indication: ATRIAL FIBRILLATION
     Dates: start: 20100323
  2. PREVISCAN [Concomitant]
     Indication: ATRIAL FIBRILLATION
     Dates: start: 20100323
  3. LASIX [Suspect]
     Route: 048
     Dates: start: 20100323, end: 20100406
  4. RAMIPRIL [Suspect]
     Dates: start: 20100323, end: 20100406

REACTIONS (1)
  - RENAL FAILURE ACUTE [None]
